FAERS Safety Report 18065310 (Version 2)
Quarter: 2023Q4

REPORT INFORMATION
  Report Type: Report from Study
  Country: US (occurrence: US)
  Receive Date: 20200724
  Receipt Date: 20231211
  Transmission Date: 20240110
  Serious: No
  Sender: FDA-Public Use
  Company Number: US-SHIRE-US202023809

PATIENT
  Sex: Male

DRUGS (1)
  1. LANADELUMAB [Suspect]
     Active Substance: LANADELUMAB
     Indication: Hereditary angioedema
     Dosage: UNK, Q2WEEKS
     Route: 058
     Dates: start: 202306

REACTIONS (4)
  - Drug ineffective [Unknown]
  - Hereditary angioedema [Unknown]
  - Insurance issue [Recovered/Resolved]
  - Product use issue [Recovered/Resolved]
